FAERS Safety Report 15675883 (Version 1)
Quarter: 2018Q4

REPORT INFORMATION
  Report Type: Spontaneous
  Country: US (occurrence: US)
  Receive Date: 20181129
  Receipt Date: 20181129
  Transmission Date: 20190205
  Serious: Yes (Hospitalization)
  Sender: FDA-Public Use
  Company Number: None

PATIENT
  Age: 35 Year
  Sex: Female

DRUGS (13)
  1. NYSTATIN SUS 100000 [Concomitant]
     Dates: start: 20180809
  2. AMLODPINE TAB 5MG [Concomitant]
     Dates: start: 20181029
  3. CEPHALEXIN CAP 500MG [Concomitant]
     Dates: start: 20181013
  4. SMZ/TMP DS TAB 800-160 [Concomitant]
     Active Substance: SULFAMETHOXAZOLE\TRIMETHOPRIM
     Dates: start: 20180808
  5. PROMETHAZINE TAB 25MG [Concomitant]
     Dates: start: 20180805
  6. PROMETHAZINE TAB 25MG [Concomitant]
     Dates: start: 20181013
  7. SUCRALFATE TAB 1 GM [Concomitant]
     Dates: start: 20181122
  8. LEVOTHYROXIN TAB 200MCG [Concomitant]
     Dates: start: 20181024
  9. OMEPRAZOLE CAP 40MG [Concomitant]
     Active Substance: OMEPRAZOLE
     Dates: start: 20181122
  10. HUMIRA [Suspect]
     Active Substance: ADALIMUMAB
     Indication: RHEUMATOID ARTHRITIS
     Dosage: ?          OTHER FREQUENCY:EVERY OTHER WEEK;?
     Route: 058
  11. LIDOCAINE SOL 2% VISC [Concomitant]
     Dates: start: 20180808
  12. PREDNISONE TAB 20MG [Concomitant]
     Active Substance: PREDNISONE
     Dates: start: 20180805
  13. VITAMIN D CAP 50000UNT [Concomitant]
     Dates: start: 20181025

REACTIONS (2)
  - Product dose omission [None]
  - Rheumatoid arthritis [None]

NARRATIVE: CASE EVENT DATE: 20181128
